APPROVED DRUG PRODUCT: NITROGLYCERIN
Active Ingredient: NITROGLYCERIN
Strength: 0.4MG
Dosage Form/Route: TABLET;SUBLINGUAL
Application: A206391 | Product #002 | TE Code: AB
Applicant: GLENMARK SPECIALTY SA
Approved: Sep 19, 2017 | RLD: No | RS: No | Type: RX